FAERS Safety Report 4883066-4 (Version None)
Quarter: 2006Q1

REPORT INFORMATION
  Report Type: 
  Country: None (occurrence: None)
  Receive Date: 20060118
  Receipt Date: 20060109
  Transmission Date: 20060701
  Serious: Yes (Hospitalization)
  Sender: FDA-Public Use
  Company Number: FR-BRISTOL-MYERS SQUIBB COMPANY-13241237

PATIENT
  Age: 66 Year
  Sex: Male

DRUGS (5)
  1. COUMADIN [Suspect]
     Route: 048
  2. TANAKAN [Concomitant]
  3. LOGIMAX [Concomitant]
  4. RENITEC [Concomitant]
  5. FONZYLANE [Concomitant]

REACTIONS (4)
  - ANAEMIA [None]
  - GASTROINTESTINAL ULCER [None]
  - MELAENA [None]
  - RECTAL HAEMORRHAGE [None]
